FAERS Safety Report 5329987-X (Version None)
Quarter: 2007Q2

REPORT INFORMATION
  Report Type: 
  Country: None (occurrence: None)
  Receive Date: 20070521
  Receipt Date: 20070517
  Transmission Date: 20071010
  Serious: Yes (Other)
  Sender: FDA-Public Use
  Company Number: A0651762A

PATIENT
  Sex: Female

DRUGS (9)
  1. TYKERB [Suspect]
     Indication: BREAST CANCER
     Dosage: 5TAB PER DAY
     Route: 048
     Dates: start: 20070401
  2. XELODA [Concomitant]
  3. AREDIA [Concomitant]
  4. AMBIEN [Concomitant]
  5. OXYCONTIN [Concomitant]
  6. EFFEXOR [Concomitant]
  7. COUMADIN [Concomitant]
  8. BENADRYL [Concomitant]
  9. CALCIUM CHLORIDE [Concomitant]

REACTIONS (2)
  - HOT FLUSH [None]
  - PALMAR-PLANTAR ERYTHRODYSAESTHESIA SYNDROME [None]
